FAERS Safety Report 4540148-4 (Version None)
Quarter: 2004Q4

REPORT INFORMATION
  Report Type: 
  Country: None (occurrence: None)
  Receive Date: 20041228
  Receipt Date: 20030113
  Transmission Date: 20050328
  Serious: Yes (Hospitalization, Other)
  Sender: FDA-Public Use
  Company Number: US-MERCK-0412USA00631

PATIENT
  Age: 44 Year
  Sex: Female

DRUGS (28)
  1. VIOXX [Suspect]
     Indication: PAIN
     Route: 048
     Dates: start: 20000101
  2. VIOXX [Suspect]
     Route: 065
  3. ADVIL [Concomitant]
     Route: 065
  4. ASPIRIN [Concomitant]
     Route: 065
  5. ASPIRIN [Concomitant]
     Route: 048
  6. ASPIRIN [Concomitant]
     Route: 065
  7. ULCERIN (CIMETIDINE) [Concomitant]
     Route: 048
     Dates: start: 20030320
  8. ULCERIN (CIMETIDINE) [Concomitant]
     Route: 048
     Dates: start: 20030320
  9. ZESTRIL [Concomitant]
     Route: 065
  10. PLAVIX [Concomitant]
     Route: 065
  11. AGYRAX (MECLIZINE HYDROCHLORIDE) [Concomitant]
     Route: 065
  12. AGYRAX (MECLIZINE HYDROCHLORIDE) [Concomitant]
     Route: 065
  13. ELAVIL [Concomitant]
     Route: 065
  14. TRAZODONE HYDROCHLORIDE [Concomitant]
     Route: 065
  15. PROTONIX [Concomitant]
     Route: 065
     Dates: start: 20031107
  16. PROTONIX [Concomitant]
     Route: 065
  17. PROTONIX [Concomitant]
     Route: 065
     Dates: start: 20010420
  18. ZOCOR [Concomitant]
     Route: 065
     Dates: start: 20031107
  19. ZOCOR [Concomitant]
     Route: 065
  20. CARAFATE [Concomitant]
     Route: 065
  21. LIPITOR [Concomitant]
     Route: 065
     Dates: start: 20031107
  22. HYDROCHLOROTHIAZIDE [Concomitant]
     Route: 065
     Dates: end: 20010205
  23. HYDROCHLOROTHIAZIDE [Concomitant]
     Route: 065
     Dates: end: 20010205
  24. ECOTRIN [Concomitant]
     Route: 065
     Dates: end: 20010420
  25. ECOTRIN [Concomitant]
     Route: 065
     Dates: end: 20010420
  26. NEXIUM [Concomitant]
     Route: 065
  27. NEXIUM [Concomitant]
     Route: 065
  28. AMINOPHYLLINE [Concomitant]
     Route: 065

REACTIONS (45)
  - ABASIA [None]
  - ABDOMINAL PAIN UPPER [None]
  - ALCOHOLISM [None]
  - ANXIETY [None]
  - BACK PAIN [None]
  - BLOOD CHOLESTEROL INCREASED [None]
  - BLOOD TRIGLYCERIDES INCREASED [None]
  - CARDIOVASCULAR DISORDER [None]
  - CAROTID ARTERY OCCLUSION [None]
  - CARPAL TUNNEL SYNDROME [None]
  - CEREBRAL INFARCTION [None]
  - CEREBRAL ISCHAEMIA [None]
  - CEREBROVASCULAR ACCIDENT [None]
  - CHEST PAIN [None]
  - CHRONIC OBSTRUCTIVE AIRWAYS DISEASE [None]
  - CONVULSION [None]
  - COSTOCHONDRITIS [None]
  - COUGH [None]
  - DRY MOUTH [None]
  - FATIGUE [None]
  - FEELING ABNORMAL [None]
  - GASTROOESOPHAGEAL REFLUX DISEASE [None]
  - HEADACHE [None]
  - HEMIPARESIS [None]
  - HYPERTENSION [None]
  - HYPOAESTHESIA ORAL [None]
  - HYPOTENSION [None]
  - INCREASED UPPER AIRWAY SECRETION [None]
  - INSOMNIA [None]
  - MITRAL VALVE INCOMPETENCE [None]
  - MONOPLEGIA [None]
  - MULTIPLE SCLEROSIS [None]
  - MUSCLE STRAIN [None]
  - MUSCULOSKELETAL CHEST PAIN [None]
  - PAIN [None]
  - PAINFUL RESPIRATION [None]
  - PLATELET COUNT DECREASED [None]
  - PLEURISY [None]
  - RENAL FAILURE [None]
  - SINUS BRADYCARDIA [None]
  - TOBACCO ABUSE [None]
  - TRANSIENT ISCHAEMIC ATTACK [None]
  - UPPER RESPIRATORY TRACT INFECTION [None]
  - UTERINE LEIOMYOMA [None]
  - VISION BLURRED [None]
